FAERS Safety Report 8460315-7 (Version None)
Quarter: 2012Q2

REPORT INFORMATION
  Report Type: 
  Country: None (occurrence: None)
  Receive Date: 20120622
  Receipt Date: 20120613
  Transmission Date: 20120825
  Serious: Yes (Disabling, Other)
  Sender: FDA-Public Use
  Company Number: US-ASTRAZENECA-2011SE07905

PATIENT
  Age: 79 Year
  Sex: Male

DRUGS (17)
  1. SEROQUEL [Suspect]
     Route: 048
  2. CALCIUM CARBONATE [Concomitant]
  3. WEPACOLD [Concomitant]
  4. PAXIL [Concomitant]
  5. ASMINAX [Concomitant]
     Route: 055
  6. NEXIUM [Concomitant]
  7. GEPULOX PATCH [Concomitant]
  8. TOPROL-XL [Suspect]
     Route: 048
  9. SPIRIVA [Concomitant]
     Route: 055
  10. ASPIRIN [Concomitant]
  11. SINEMET [Concomitant]
  12. FIBERCON [Concomitant]
  13. UNSPECIFIED ANESTHESIA [Suspect]
  14. COUMADIN [Concomitant]
  15. COLACE [Concomitant]
  16. CRESTOR [Suspect]
     Route: 048
  17. MULTI-VITAMIN [Concomitant]

REACTIONS (13)
  - PARALYSIS [None]
  - ABASIA [None]
  - OESOPHAGEAL INFECTION [None]
  - PARKINSON'S DISEASE [None]
  - HALLUCINATION [None]
  - DISORIENTATION [None]
  - APHAGIA [None]
  - THROAT TIGHTNESS [None]
  - MUSCLE SPASMS [None]
  - DRUG HYPERSENSITIVITY [None]
  - ADVERSE DRUG REACTION [None]
  - CARDIAC DISORDER [None]
  - APHASIA [None]
